FAERS Safety Report 9658045 (Version 1)
Quarter: 2013Q4

REPORT INFORMATION
  Report Type: Spontaneous
  Country: US (occurrence: US)
  Receive Date: 20131030
  Receipt Date: 20131030
  Transmission Date: 20140711
  Serious: Yes (Other)
  Sender: FDA-Public Use
  Company Number: US-PFIZER INC-2013299112

PATIENT
  Sex: Female

DRUGS (1)
  1. ROBITUSSIN COUGH AND CHEST CONGESTION SUGAR FREE DM [Suspect]
     Dosage: 10 ML, UNK
     Dates: start: 20131016

REACTIONS (3)
  - Dyspnoea [Unknown]
  - Heart rate abnormal [Unknown]
  - Heart rate increased [Unknown]
